FAERS Safety Report 7005048-9 (Version None)
Quarter: 2010Q3

REPORT INFORMATION
  Report Type: 
  Country: None (occurrence: None)
  Receive Date: 20100921
  Receipt Date: 20100906
  Transmission Date: 20110219
  Serious: Yes (Hospitalization, Other)
  Sender: FDA-Public Use
  Company Number: PHHY2010CA58691

PATIENT
  Age: 42 Year
  Sex: Female

DRUGS (7)
  1. CYCLOSPORINE [Suspect]
     Indication: RENAL TRANSPLANT
  2. CYCLOSPORINE [Suspect]
     Indication: IMMUNOSUPPRESSION
  3. AZATHIOPRINE [Concomitant]
     Indication: IMMUNOSUPPRESSION
  4. AZATHIOPRINE [Concomitant]
     Indication: RENAL TRANSPLANT
  5. PREDNISONE [Concomitant]
     Indication: IMMUNOSUPPRESSION
  6. PREDNISONE [Concomitant]
     Indication: RENAL TRANSPLANT
  7. ANTIHYPERTENSIVE DRUGS [Concomitant]

REACTIONS (14)
  - ABDOMINAL DISCOMFORT [None]
  - ABDOMINAL DISTENSION [None]
  - ARTERIAL INJURY [None]
  - CAPILLARY DISORDER [None]
  - CHRONIC ALLOGRAFT NEPHROPATHY [None]
  - COUGH [None]
  - DYSPNOEA EXERTIONAL [None]
  - GLOMERULOSCLEROSIS [None]
  - HYPERTENSION [None]
  - PROTEINURIA [None]
  - RENAL IMPAIRMENT [None]
  - SCLERODERMA RENAL CRISIS [None]
  - SKIN TIGHTNESS [None]
  - TUBULOINTERSTITIAL NEPHRITIS [None]
